FAERS Safety Report 8062697 (Version 5)
Quarter: 2013Q3

REPORT INFORMATION
  Report Type: Spontaneous
  Country: IT (occurrence: IT)
  Receive Date: 20110801
  Receipt Date: 20130703
  Transmission Date: 20140515
  Serious: Yes (Hospitalization)
  Sender: FDA-Public Use
  Company Number: IT-SHIRE-SPV1-2011-00794

PATIENT
  Age: 16 Year
  Sex: Male
  Weight: 37 kg

DRUGS (6)
  1. ELAPRASE [Suspect]
     Indication: MUCOPOLYSACCHARIDOSIS II
     Dosage: UNK, UNKNOWN
     Route: 041
     Dates: start: 20061027, end: 20110512
  2. ELAPRASE [Suspect]
     Dosage: UNK, UNKNOWN
     Route: 041
  3. TOPIRAMATO [Concomitant]
     Indication: EPILEPSY
     Dosage: 100 MG, 3X/DAY:TID
     Route: 048
  4. DIAZEPAM [Concomitant]
     Indication: EPILEPSY
     Dosage: 5 GTT, 3X/DAY:TID
     Route: 048
  5. DINTOINA [Concomitant]
     Indication: EPILEPSY
     Dosage: 50 MG, 3X/DAY:TID
     Route: 048
  6. MELATONINA [Concomitant]
     Indication: SLEEP DISORDER
     Dosage: 30 MG, 1X/DAY:QD
     Route: 065

REACTIONS (6)
  - Convulsion [Recovered/Resolved]
  - Oxygen saturation decreased [Recovered/Resolved]
  - Respiratory distress [Recovered/Resolved]
  - Urticaria [Recovered/Resolved]
  - Bronchospasm [Recovered/Resolved]
  - Infusion related reaction [Recovered/Resolved]
